FAERS Safety Report 5627158-0 (Version None)
Quarter: 2008Q1

REPORT INFORMATION
  Report Type: 
  Country: None (occurrence: None)
  Receive Date: 20080212
  Receipt Date: 20080212
  Transmission Date: 20080703
  Serious: Yes (Life-Threatening)
  Sender: FDA-Public Use
  Company Number: None

PATIENT
  Age: 17 Year
  Sex: Male
  Weight: 74.8435 kg

DRUGS (1)
  1. ACCUTANE [Suspect]
     Indication: ACNE
     Dosage: 2 PILLS PER DAY
     Dates: start: 20070510, end: 20071031

REACTIONS (4)
  - ABNORMAL BEHAVIOUR [None]
  - LEGAL PROBLEM [None]
  - PERSONALITY CHANGE [None]
  - THINKING ABNORMAL [None]
